FAERS Safety Report 6694881-9 (Version None)
Quarter: 2010Q2

REPORT INFORMATION
  Report Type: 
  Country: None (occurrence: None)
  Receive Date: 20100423
  Receipt Date: 20100415
  Transmission Date: 20101027
  Serious: Yes (Hospitalization)
  Sender: FDA-Public Use
  Company Number: JP-PERRIGO-10JP008857

PATIENT
  Age: 8 Year
  Sex: Female

DRUGS (5)
  1. ACETAMINOPHEN SLOW RELEASE [Suspect]
     Indication: PNEUMONIA
     Dosage: UNK
     Route: 048
  2. AMOXICILLIN [Concomitant]
     Indication: PNEUMONIA
     Dosage: UNK
     Route: 048
  3. CLARITHROMYCIN [Concomitant]
     Indication: PNEUMONIA
     Dosage: UNK
     Route: 048
  4. CEFOTAXIME [Concomitant]
     Indication: PNEUMONIA
     Dosage: UNK
     Route: 042
  5. MINOCYCLINE HCL [Concomitant]
     Indication: PNEUMONIA
     Dosage: UNK
     Route: 042

REACTIONS (3)
  - HEPATIC NECROSIS [None]
  - LIVER DISORDER [None]
  - TRANSAMINASES INCREASED [None]
